FAERS Safety Report 11979772 (Version 5)
Quarter: 2016Q1

REPORT INFORMATION
  Report Type: Report from Study
  Country: US (occurrence: US)
  Receive Date: 20160129
  Receipt Date: 20160321
  Transmission Date: 20160526
  Serious: No
  Sender: FDA-Public Use
  Company Number: US-AMGEN-USASL2016008395

PATIENT
  Age: 69 Year
  Sex: Male

DRUGS (2)
  1. ENBREL [Suspect]
     Active Substance: ETANERCEPT
     Indication: PSORIATIC ARTHROPATHY
     Dosage: 50 MG, QWK
     Route: 065
     Dates: start: 2011
  2. ENBREL [Suspect]
     Active Substance: ETANERCEPT
     Dosage: UNK UNK, 2 TIMES/WK
     Route: 065

REACTIONS (12)
  - Arthralgia [Unknown]
  - Myalgia [Unknown]
  - Blood cholesterol abnormal [Unknown]
  - Arthritis [Unknown]
  - Pain [Unknown]
  - Malaise [Not Recovered/Not Resolved]
  - Intentional product misuse [Unknown]
  - Pain in extremity [Unknown]
  - Carpal tunnel syndrome [Not Recovered/Not Resolved]
  - Asthenia [Unknown]
  - Drug effect incomplete [Unknown]
  - Off label use [Unknown]

NARRATIVE: CASE EVENT DATE: 2016
